FAERS Safety Report 17173799 (Version 2)
Quarter: 2020Q1

REPORT INFORMATION
  Report Type: Spontaneous
  Country: US (occurrence: US)
  Receive Date: 20191219
  Receipt Date: 20200211
  Transmission Date: 20200409
  Serious: No
  Sender: FDA-Public Use
  Company Number: US-PFIZER INC-2019546562

PATIENT
  Age: 59 Year
  Sex: Male
  Weight: 160.54 kg

DRUGS (2)
  1. CAVERJECT [Suspect]
     Active Substance: ALPROSTADIL
     Dosage: 40 UG, UNK (10UNITS)
     Route: 017
     Dates: start: 20191028, end: 201911
  2. CAVERJECT [Suspect]
     Active Substance: ALPROSTADIL
     Indication: ERECTILE DYSFUNCTION
     Dosage: UNK, AS NEEDED [40MCG/0.4ML AS NEEDED BY INJECTION]
     Route: 017

REACTIONS (4)
  - Drug ineffective [Unknown]
  - Injection site pain [Unknown]
  - Penile pain [Recovered/Resolved]
  - Genital discomfort [Unknown]

NARRATIVE: CASE EVENT DATE: 201910
